FAERS Safety Report 7984864-0 (Version None)
Quarter: 2011Q4

REPORT INFORMATION
  Report Type: 
  Country: None (occurrence: None)
  Receive Date: 20111216
  Receipt Date: 20111026
  Transmission Date: 20120403
  Serious: No
  Sender: FDA-Public Use
  Company Number: US-ALLERGAN-1112800US

PATIENT
  Age: 47 Year
  Sex: Female

DRUGS (3)
  1. MEDICATION FOR HIGH BLOOD PRESSURE UNSPECIFIED [Concomitant]
     Indication: HYPERTENSION
     Dosage: UNK
  2. LATISSE [Suspect]
     Indication: GROWTH OF EYELASHES
     Dosage: 1 GTT, QHS
     Route: 061
     Dates: end: 20111018
  3. THERA TEARS [Concomitant]
     Dosage: UNK
     Route: 047

REACTIONS (6)
  - SKIN HYPERPIGMENTATION [None]
  - MUSCLE TWITCHING [None]
  - TRICHORRHEXIS [None]
  - MADAROSIS [None]
  - VISUAL ACUITY REDUCED [None]
  - EYE PRURITUS [None]
